FAERS Safety Report 5499417-6 (Version None)
Quarter: 2007Q4

REPORT INFORMATION
  Report Type: 
  Country: None (occurrence: None)
  Receive Date: 20071026
  Receipt Date: 20071016
  Transmission Date: 20080405
  Serious: Yes (Other)
  Sender: FDA-Public Use
  Company Number: B0492285A

PATIENT
  Sex: Female

DRUGS (1)
  1. LAMICTAL [Suspect]
     Dosage: .5MG PER DAY
     Dates: start: 20070901, end: 20071001

REACTIONS (2)
  - HAEMATOMA [None]
  - RECTAL HAEMORRHAGE [None]
